FAERS Safety Report 10386725 (Version 3)
Quarter: 2014Q4

REPORT INFORMATION
  Report Type: Spontaneous
  Country: US (occurrence: US)
  Receive Date: 20140815
  Receipt Date: 20141205
  Transmission Date: 20150528
  Serious: Yes (Other)
  Sender: FDA-Public Use
  Company Number: US-BRISTOL-MYERS SQUIBB COMPANY-20767612

PATIENT
  Age: 53 Year
  Sex: Female
  Weight: 82.54 kg

DRUGS (8)
  1. ISENTRESS [Concomitant]
     Active Substance: RALTEGRAVIR POTASSIUM
  2. NORVIR [Concomitant]
     Active Substance: RITONAVIR
  3. PREZISTA [Concomitant]
     Active Substance: DARUNAVIR ETHANOLATE
  4. ACYCLOVIR. [Concomitant]
     Active Substance: ACYCLOVIR
  5. PAXIL [Concomitant]
     Active Substance: PAROXETINE HYDROCHLORIDE
     Indication: DEPRESSION
  6. COMBIVENT [Concomitant]
     Active Substance: ALBUTEROL SULFATE\IPRATROPIUM BROMIDE
  7. INTELENCE [Concomitant]
     Active Substance: ETRAVIRINE
  8. ZERIT [Suspect]
     Active Substance: STAVUDINE
     Indication: ACQUIRED IMMUNODEFICIENCY SYNDROME
     Dosage: 31MAY1999
     Route: 048
     Dates: start: 1995, end: 19990331

REACTIONS (1)
  - Neuropathy peripheral [Recovering/Resolving]
